FAERS Safety Report 12522638 (Version 1)
Quarter: 2016Q3

REPORT INFORMATION
  Report Type: Spontaneous
  Country: US (occurrence: US)
  Receive Date: 20160701
  Receipt Date: 20160701
  Transmission Date: 20161109
  Serious: No
  Sender: FDA-Public Use
  Company Number: US-BAYER-2016-119960

PATIENT
  Age: 7 Year
  Sex: Male

DRUGS (1)
  1. KOGENATE FS [Suspect]
     Active Substance: ANTIHEMOPHILIC FACTOR, HUMAN RECOMBINANT
     Indication: FACTOR VIII DEFICIENCY
     Dosage: 1000 UNITS ON TUESDAY AND THURSDAY; 1600 UNITS ON SATURDAY
     Route: 042
     Dates: start: 20160331

REACTIONS (1)
  - Fibrin [None]

NARRATIVE: CASE EVENT DATE: 20160613
